FAERS Safety Report 7728632-3 (Version None)
Quarter: 2011Q3

REPORT INFORMATION
  Report Type: 
  Country: None (occurrence: None)
  Receive Date: 20110831
  Receipt Date: 20110831
  Transmission Date: 20111222
  Serious: Yes (Life-Threatening, Hospitalization)
  Sender: FDA-Public Use
  Company Number: None

PATIENT

DRUGS (1)
  1. HYDROCORTISONE [Suspect]
     Indication: ADDISON'S DISEASE
     Dosage: 20 MG IN 3 DOSES PER DAY
     Dates: start: 20100601

REACTIONS (8)
  - INFECTION SUSCEPTIBILITY INCREASED [None]
  - CIRCADIAN RHYTHM SLEEP DISORDER [None]
  - DRUG EFFECT INCREASED [None]
  - INCREASED TENDENCY TO BRUISE [None]
  - DRUG EFFECT DECREASED [None]
  - PRODUCT SUBSTITUTION ISSUE [None]
  - WEIGHT INCREASED [None]
  - ADRENOCORTICAL INSUFFICIENCY ACUTE [None]
